FAERS Safety Report 24626836 (Version 1)
Quarter: 2024Q4

REPORT INFORMATION
  Report Type: Spontaneous
  Country: US (occurrence: US)
  Receive Date: 20241115
  Receipt Date: 20241115
  Transmission Date: 20250115
  Serious: No
  Sender: NOVO NORDISK
  Company Number: US-NOVOPROD-1195593

PATIENT
  Sex: Male

DRUGS (1)
  1. NOVOLOG [Suspect]
     Active Substance: INSULIN ASPART
     Indication: Product used for unknown indication
     Dosage: HALF UNITS OF INSULIN AND VARIES ON CARBS TAKEN
     Route: 058
     Dates: start: 20240207

REACTIONS (2)
  - Abdominal discomfort [Unknown]
  - Product quality issue [Unknown]
